FAERS Safety Report 19772871 (Version 1)
Quarter: 2021Q3

REPORT INFORMATION
  Report Type: Spontaneous
  Country: CN (occurrence: CN)
  Receive Date: 20210831
  Receipt Date: 20210831
  Transmission Date: 20211014
  Serious: Yes (Other)
  Sender: FDA-Public Use
  Company Number: CN-PFIZER INC-202101076406

PATIENT
  Age: 54 Year
  Sex: Female
  Weight: 63 kg

DRUGS (3)
  1. IRINOTECAN HCL [Suspect]
     Active Substance: IRINOTECAN HYDROCHLORIDE
     Indication: RECTAL CANCER
     Dosage: 260.0 MG, 1X/DAY
     Route: 041
     Dates: start: 20210724, end: 20210724
  2. FLUOROURACIL. [Suspect]
     Active Substance: FLUOROURACIL
     Indication: RECTAL CANCER
     Dosage: 3.5 G, 1X/DAY (IV 46?48H)
     Route: 041
     Dates: start: 20210724, end: 20210724
  3. BEVACIZUMAB. [Suspect]
     Active Substance: BEVACIZUMAB
     Indication: RECTAL CANCER
     Dosage: 300.0 MG, 1X/DAY
     Route: 041
     Dates: start: 20210724, end: 20210724

REACTIONS (2)
  - Neutrophil count decreased [Recovering/Resolving]
  - White blood cell disorder [Recovering/Resolving]

NARRATIVE: CASE EVENT DATE: 20210811
